FAERS Safety Report 8607904 (Version 3)
Quarter: 2014Q1

REPORT INFORMATION
  Report Type: Spontaneous
  Country: US (occurrence: US)
  Receive Date: 20120611
  Receipt Date: 20140107
  Transmission Date: 20141002
  Serious: Yes (Disabling)
  Sender: FDA-Public Use
  Company Number: US-ASTRAZENECA-2012SE34919

PATIENT
  Age: 43 Year
  Sex: Female

DRUGS (9)
  1. NEXIUM [Suspect]
     Indication: GASTROOESOPHAGEAL REFLUX DISEASE
     Route: 048
  2. NEXIUM [Suspect]
     Indication: GASTROOESOPHAGEAL REFLUX DISEASE
     Route: 048
     Dates: start: 2005, end: 2010
  3. PRILOSEC [Suspect]
     Route: 048
  4. ELAVIL [Concomitant]
     Dates: start: 20090330
  5. LORTAB [Concomitant]
  6. LEXAPRO [Concomitant]
     Dates: start: 20051206
  7. VISTARIL [Concomitant]
  8. CARISOPRODOL [Concomitant]
     Dates: start: 20090109
  9. LORATADINE [Concomitant]
     Dates: start: 20090109

REACTIONS (7)
  - Ankle fracture [Unknown]
  - Post-traumatic stress disorder [Unknown]
  - Osteoporosis [Unknown]
  - Multiple fractures [Unknown]
  - Bone pain [Unknown]
  - Arthritis [Unknown]
  - Bone disorder [Unknown]
